FAERS Safety Report 9126181 (Version 1)
Quarter: 2013Q1

REPORT INFORMATION
  Report Type: Spontaneous
  Country: US (occurrence: US)
  Receive Date: 20130121
  Receipt Date: 20130121
  Transmission Date: 20140127
  Serious: Yes (Other)
  Sender: FDA-Public Use
  Company Number: US-RB-048650-13

PATIENT
  Age: 35 Year
  Sex: Female

DRUGS (2)
  1. SUBOXONE TABLET [Suspect]
     Indication: DRUG DEPENDENCE
     Dosage: 2 DOSES 4 HOURS APART
     Route: 060
     Dates: start: 2010, end: 2010
  2. HEROIN [Suspect]
     Indication: PRODUCT USED FOR UNKNOWN INDICATION
     Dosage: DOSING DETAILS UNKNOWN
     Route: 065

REACTIONS (3)
  - Haematemesis [Recovered/Resolved]
  - Blood pressure fluctuation [Recovered/Resolved]
  - Urticaria [Recovered/Resolved]
